FAERS Safety Report 25140545 (Version 1)
Quarter: 2025Q1

REPORT INFORMATION
  Report Type: Spontaneous
  Country: DE (occurrence: DE)
  Receive Date: 20250331
  Receipt Date: 20250331
  Transmission Date: 20250409
  Serious: Yes (Other)
  Sender: IDORSIA PHARMACEUTICALS
  Company Number: DE-IDORSIA-009835-2025-DE

PATIENT
  Sex: Female

DRUGS (2)
  1. QUVIVIQ [Suspect]
     Active Substance: DARIDOREXANT
     Indication: Product used for unknown indication
     Route: 065
  2. LOSARTAN POTASSIUM [Concomitant]
     Active Substance: LOSARTAN POTASSIUM

REACTIONS (2)
  - Angina pectoris [Unknown]
  - Fear [Unknown]
